FAERS Safety Report 23397030 (Version 1)
Quarter: 2024Q1

REPORT INFORMATION
  Report Type: Spontaneous
  Country: GB (occurrence: GB)
  Receive Date: 20240112
  Receipt Date: 20240112
  Transmission Date: 20240409
  Serious: Yes (Other)
  Sender: FDA-Public Use
  Company Number: None

PATIENT
  Sex: Female

DRUGS (15)
  1. BEXSERO [Suspect]
     Active Substance: NEISSERIA MENINGITIDIS GROUP B FHBP FUSION PROTEIN ANTIGEN\NEISSERIA MENINGITIDIS GROUP B NADA PROTE
     Indication: Immunisation
     Dosage: UNK
     Route: 065
     Dates: start: 20170427, end: 20170427
  2. BEXSERO [Suspect]
     Active Substance: NEISSERIA MENINGITIDIS GROUP B FHBP FUSION PROTEIN ANTIGEN\NEISSERIA MENINGITIDIS GROUP B NADA PROTE
     Dosage: UNK
     Route: 065
     Dates: start: 20170224, end: 20170224
  3. DIPHTHERIA AND TETANUS TOXOIDS AND ACELLULAR PERTUSSIS ADSORBED AND IN [Suspect]
     Active Substance: DIPHTHERIA AND TETANUS TOXOIDS AND ACELLULAR PERTUSSIS ADSORBED AND INACTIVATED POLIOVIRUS VACCINE
     Indication: Product used for unknown indication
     Dosage: UNK
     Route: 064
  4. MEASLES-RUBELLA VIRUS VACCINE, LIVE NOS [Suspect]
     Active Substance: MEASLES-RUBELLA VIRUS VACCINE, LIVE
     Indication: Immunisation
     Dosage: UNK
     Route: 065
     Dates: start: 20160226, end: 20160226
  5. MENINGOCOCCAL POLYSACCHARIDE VACCINE, GROUPS A AND C COMBINED [Suspect]
     Active Substance: MENINGOCOCCAL POLYSACCHARIDE VACCINE, GROUPS A AND C COMBINED
     Indication: Immunisation
     Dosage: UNK
     Route: 065
     Dates: start: 20150130, end: 20150130
  6. ACETAMINOPHEN [Suspect]
     Active Substance: ACETAMINOPHEN
     Indication: Product used for unknown indication
     Dosage: UNK
     Route: 065
  7. PEDIACEL [Suspect]
     Active Substance: DIPHTHERIA AND TETANUS TOXOIDS AND ACELLULAR PERTUSSIS ADSORBED, INACTIVATED POLIOVIRUS AND HAEMOPHI
     Indication: Immunisation
     Dosage: UNK
     Route: 065
     Dates: start: 20140102, end: 20140102
  8. PEDIACEL [Suspect]
     Active Substance: DIPHTHERIA AND TETANUS TOXOIDS AND ACELLULAR PERTUSSIS ADSORBED, INACTIVATED POLIOVIRUS AND HAEMOPHI
     Dosage: UNK
     Route: 065
     Dates: start: 20150130, end: 20150130
  9. PEDIACEL [Suspect]
     Active Substance: DIPHTHERIA AND TETANUS TOXOIDS AND ACELLULAR PERTUSSIS ADSORBED, INACTIVATED POLIOVIRUS AND HAEMOPHI
     Dosage: UNK
     Route: 065
     Dates: start: 20150306, end: 20150306
  10. PREVNAR 13 [Suspect]
     Active Substance: PNEUMOCOCCAL 13-VALENT CONJUGATE VACCINE
     Indication: Immunisation
     Dosage: UNK
     Route: 065
     Dates: start: 20150102, end: 20150102
  11. PREVNAR 13 [Suspect]
     Active Substance: PNEUMOCOCCAL 13-VALENT CONJUGATE VACCINE
     Dosage: UNK
     Route: 065
     Dates: start: 20150306, end: 20150306
  12. REVAXIS [Suspect]
     Active Substance: DIPHTHERIA AND TETANUS TOXOIDS AND POLIOVIRUS VACCINE ANTIGENS
     Indication: Product used for unknown indication
     Dosage: UNK
     Route: 065
     Dates: start: 20190430, end: 20190430
  13. ROTARIX [Suspect]
     Active Substance: HUMAN ROTAVIRUS A TYPE G1P(8) STRAIN RIX4414 LIVE ANTIGEN
     Dosage: UNK
     Route: 065
     Dates: start: 20150130, end: 20150130
  14. ROTARIX [Suspect]
     Active Substance: HUMAN ROTAVIRUS A TYPE G1P(8) STRAIN RIX4414 LIVE ANTIGEN
     Indication: Immunisation
     Dosage: UNK
     Route: 065
     Dates: start: 20150102, end: 20150102
  15. VITAMIN K [Suspect]
     Active Substance: PHYTONADIONE
     Indication: Product used for unknown indication
     Dosage: UNK
     Route: 065
     Dates: start: 20141021, end: 20141021

REACTIONS (7)
  - Eczema [Not Recovered/Not Resolved]
  - Developmental coordination disorder [Not Recovered/Not Resolved]
  - Autism spectrum disorder [Not Recovered/Not Resolved]
  - Sensory processing disorder [Not Recovered/Not Resolved]
  - Reaction to excipient [Unknown]
  - Foetal growth restriction [Unknown]
  - Foetal exposure during pregnancy [Unknown]
